FAERS Safety Report 6254140-5 (Version None)
Quarter: 2009Q3

REPORT INFORMATION
  Report Type: 
  Country: None (occurrence: None)
  Receive Date: 20090702
  Receipt Date: 20090629
  Transmission Date: 20100115
  Serious: Yes (Other)
  Sender: FDA-Public Use
  Company Number: CA-BAYER-200925150NA

PATIENT
  Age: 37 Year
  Sex: Female

DRUGS (4)
  1. CIPRO [Suspect]
     Indication: DRUG USE FOR UNKNOWN INDICATION
  2. ANCEF [Suspect]
     Indication: DRUG USE FOR UNKNOWN INDICATION
     Route: 042
  3. CLINDAMYCIN [Suspect]
  4. REMICADE [Suspect]
     Route: 042

REACTIONS (3)
  - HYPERSENSITIVITY [None]
  - OSTEOMYELITIS [None]
  - RASH [None]
